FAERS Safety Report 5430357-4 (Version None)
Quarter: 2007Q3

REPORT INFORMATION
  Report Type: 
  Country: None (occurrence: None)
  Receive Date: 20070828
  Receipt Date: 20070821
  Transmission Date: 20080115
  Serious: Yes (Other)
  Sender: FDA-Public Use
  Company Number: 163-21880-07081288

PATIENT
  Age: 68 Year

DRUGS (1)
  1. REVLIMID [Suspect]
     Indication: MYELODYSPLASTIC SYNDROME
     Dosage: 20 MG, 2 IN 1 D, ORAL
     Route: 048
     Dates: start: 20061101

REACTIONS (1)
  - HAEMORRHOIDS [None]
